FAERS Safety Report 6644177-6 (Version None)
Quarter: 2010Q1

REPORT INFORMATION
  Report Type: 
  Country: None (occurrence: None)
  Receive Date: 20100322
  Receipt Date: 20100318
  Transmission Date: 20100710
  Serious: Yes (Death, Hospitalization)
  Sender: FDA-Public Use
  Company Number: PHHY2009BR55136

PATIENT
  Sex: Female

DRUGS (1)
  1. EXELON [Suspect]
     Indication: SENILE DEMENTIA
     Dosage: 9MG/5CM2, 1 PATCH PER DAY
     Route: 062

REACTIONS (3)
  - ASTHENIA [None]
  - CARDIO-RESPIRATORY ARREST [None]
  - IDIOPATHIC PULMONARY FIBROSIS [None]
